FAERS Safety Report 5107358-9 (Version None)
Quarter: 2006Q3

REPORT INFORMATION
  Report Type: 
  Country: None (occurrence: None)
  Receive Date: 20060914
  Receipt Date: 20060908
  Transmission Date: 20061208
  Serious: Yes (Other)
  Sender: FDA-Public Use
  Company Number: 2006108803

PATIENT
  Sex: Female

DRUGS (1)
  1. XALATAN [Suspect]
     Indication: GLAUCOMA
     Dosage: (1 DROP IN BOTH EYES ONCE A DAY)

REACTIONS (6)
  - CATARACT [None]
  - CONDITION AGGRAVATED [None]
  - DRUG DOSE OMISSION [None]
  - EYE BURNS [None]
  - EYE INFECTION [None]
  - MEMORY IMPAIRMENT [None]
